FAERS Safety Report 10531538 (Version 6)
Quarter: 2020Q4

REPORT INFORMATION
  Report Type: Spontaneous
  Country: TR (occurrence: TR)
  Receive Date: 20141021
  Receipt Date: 20201016
  Transmission Date: 20210113
  Serious: Yes (Death)
  Sender: FDA-Public Use
  Company Number: ALCN2014TR005807

PATIENT
  Age: 26 Week
  Sex: Female
  Weight: 1.05 kg

DRUGS (4)
  1. CYCLOPENTOLATE HCL [Suspect]
     Active Substance: CYCLOPENTOLATE HYDROCHLORIDE
     Indication: RETINOPATHY OF PREMATURITY
  2. CYCLOPENTOLATE HCL [Suspect]
     Active Substance: CYCLOPENTOLATE HYDROCHLORIDE
     Indication: FUNDOSCOPY
     Dosage: 1 DF, BID WITH AN INTERVAL OF 10 MINUTES
     Route: 047
  3. PHENYLEPHRINE HCL [Suspect]
     Active Substance: PHENYLEPHRINE HYDROCHLORIDE
     Indication: RETINOPATHY OF PREMATURITY
  4. PHENYLEPHRINE HCL [Suspect]
     Active Substance: PHENYLEPHRINE HYDROCHLORIDE
     Indication: FUNDOSCOPY
     Dosage: 1 DF, BID WITH AN INTERVAL OF 10 MINUTES
     Route: 047

REACTIONS (12)
  - Neutropenia [Fatal]
  - Tachycardia [Fatal]
  - Cardiac arrest [Fatal]
  - Impaired gastric emptying [Fatal]
  - Necrotising enterocolitis neonatal [Fatal]
  - Oxygen saturation decreased [Fatal]
  - Livedo reticularis [Fatal]
  - Tachypnoea [Fatal]
  - Abdominal distension [Fatal]
  - Leukopenia [Fatal]
  - Pneumatosis intestinalis [Fatal]
  - Necrosis [Fatal]
